FAERS Safety Report 5564496-4 (Version None)
Quarter: 2007Q4

REPORT INFORMATION
  Report Type: 
  Country: None (occurrence: None)
  Receive Date: 20071218
  Receipt Date: 20071207
  Transmission Date: 20080405
  Serious: Yes (Other)
  Sender: FDA-Public Use
  Company Number: HQ3779215AUG2002

PATIENT
  Sex: Male
  Weight: 81.72 kg

DRUGS (17)
  1. EFFEXOR XR [Suspect]
     Indication: ANXIETY
     Route: 048
     Dates: start: 20020101, end: 20020101
  2. EFFEXOR XR [Suspect]
     Indication: AGITATION
     Route: 048
     Dates: start: 20020101, end: 20020101
  3. EFFEXOR XR [Suspect]
     Indication: TEMPOROMANDIBULAR JOINT SYNDROME
     Route: 048
     Dates: start: 20020101, end: 20020101
  4. EFFEXOR XR [Suspect]
     Indication: TINNITUS
     Route: 048
     Dates: start: 20020101, end: 20020101
  5. EFFEXOR XR [Suspect]
     Route: 048
     Dates: start: 20020101, end: 20020101
  6. NORPACE - SLOW RELEASE [Concomitant]
     Indication: ARRHYTHMIA
     Route: 065
     Dates: start: 19960101
  7. ATENOLOL [Concomitant]
     Indication: BLOOD PRESSURE INCREASED
     Route: 065
     Dates: start: 19960101
  8. EFFEXOR [Suspect]
     Indication: ANXIETY
     Dosage: DOSE UNKNOWN
     Route: 048
     Dates: start: 20020101, end: 20030401
  9. EFFEXOR [Suspect]
     Indication: TINNITUS
  10. EFFEXOR [Suspect]
     Indication: AGITATION
  11. EFFEXOR [Suspect]
     Indication: TEMPOROMANDIBULAR JOINT SYNDROME
  12. CLORAZEPATE DIPOTASSIUM [Concomitant]
     Indication: TINNITUS
     Route: 065
  13. CLORAZEPATE DIPOTASSIUM [Concomitant]
     Indication: TEMPOROMANDIBULAR JOINT SYNDROME
  14. ELAVIL [Concomitant]
     Dosage: UNKNOWN
     Route: 065
  15. TRAZODONE HCL [Concomitant]
     Dosage: UNKNOWN
     Route: 065
  16. SYNTHROID [Concomitant]
     Indication: HYPOTHYROIDISM
     Route: 065
     Dates: start: 19830101
  17. LANOXIN [Concomitant]
     Indication: CARDIAC DISORDER
     Route: 065
     Dates: start: 19900101

REACTIONS (17)
  - ABNORMAL DREAMS [None]
  - CONSTIPATION [None]
  - CONVULSION [None]
  - DIZZINESS [None]
  - DRUG INEFFECTIVE [None]
  - DRUG WITHDRAWAL SYNDROME [None]
  - DYSGEUSIA [None]
  - FEELING ABNORMAL [None]
  - HYPOAESTHESIA FACIAL [None]
  - IMPAIRED WORK ABILITY [None]
  - INSOMNIA [None]
  - MUSCLE TWITCHING [None]
  - NAUSEA [None]
  - PARAESTHESIA [None]
  - SENSORY DISTURBANCE [None]
  - TINNITUS [None]
  - UNEVALUABLE EVENT [None]
